FAERS Safety Report 5125147-6 (Version None)
Quarter: 2006Q4

REPORT INFORMATION
  Report Type: 
  Country: None (occurrence: None)
  Receive Date: 20061006
  Receipt Date: 20060921
  Transmission Date: 20070319
  Serious: Yes (Hospitalization)
  Sender: FDA-Public Use
  Company Number: 2006001835

PATIENT
  Age: 61 Year
  Sex: Male

DRUGS (7)
  1. ERLOTINIB (TABLET) [Suspect]
     Indication: NON-SMALL CELL LUNG CANCER
     Dosage: 150 MG (QD), ORAL
     Route: 048
     Dates: start: 20060328, end: 20060906
  2. FUROSEMIDE [Concomitant]
  3. SOTAHEXAL (SOTALOL HYDROCHLORIDE) [Concomitant]
  4. ENALAPRIL MALEATE [Concomitant]
  5. IMDUR [Concomitant]
  6. IMOVANE (ZOPICLONE) [Concomitant]
  7. TRAMADOL HCL [Concomitant]

REACTIONS (5)
  - HAEMOGLOBIN DECREASED [None]
  - LUNG NEOPLASM MALIGNANT [None]
  - MALIGNANT NEOPLASM PROGRESSION [None]
  - SKIN ULCER HAEMORRHAGE [None]
  - SOFT TISSUE HAEMORRHAGE [None]
